FAERS Safety Report 5163233-5 (Version None)
Quarter: 2006Q4

REPORT INFORMATION
  Report Type: 
  Country: None (occurrence: None)
  Receive Date: 20061204
  Receipt Date: 20060302
  Transmission Date: 20070319
  Serious: Yes (Other)
  Sender: FDA-Public Use
  Company Number: US-ELI_LILLY_AND_COMPANY-US200603004806

PATIENT
  Age: 64 Year
  Sex: Male
  Weight: 99.319 kg

DRUGS (3)
  1. TIOTIXENE [Concomitant]
     Dates: start: 19830101, end: 19970101
  2. HYDROCHLORZIDE [Concomitant]
     Dates: start: 19980201
  3. ZYPREXA [Suspect]
     Dosage: 15 MG, UNK
     Dates: start: 19970101

REACTIONS (5)
  - BLOOD CHOLESTEROL ABNORMAL [None]
  - DIABETES MELLITUS [None]
  - HYPERGLYCAEMIA [None]
  - HYPERTENSION [None]
  - MYOCARDIAL ISCHAEMIA [None]
